FAERS Safety Report 8747822 (Version 3)
Quarter: 2013Q1

REPORT INFORMATION
  Report Type: Report from Study
  Country: JP (occurrence: JP)
  Receive Date: 20120827
  Receipt Date: 20130125
  Transmission Date: 20140127
  Serious: Yes (Death, Hospitalization)
  Sender: FDA-Public Use
  Company Number: JP-009507513-1108USA01624

PATIENT
  Age: 46 Year
  Sex: Male

DRUGS (8)
  1. ISENTRESS [Suspect]
     Indication: HIV INFECTION
     Dosage: DIVIDED DOSE FREQUENCY UNKNOWN
     Route: 048
     Dates: start: 20080731, end: 20110807
  2. KALETRA [Suspect]
     Indication: HIV INFECTION
     Dosage: DIVIDED DOSE FREQUENCY UNKNOWN
     Route: 048
     Dates: start: 20020903, end: 20040804
  3. KALETRA [Suspect]
     Dosage: DIVIDED DOSE FREQUENCY UNKNOWN
     Route: 048
     Dates: start: 20040831, end: 20060921
  4. KALETRA [Suspect]
     Dosage: DIVIDED DOSE FREQUENCY UNKNOWN
     Route: 048
     Dates: start: 20061026, end: 20110707
  5. INVIRASE [Suspect]
     Indication: HIV INFECTION
     Dosage: DIVIDED DOSE REQUENCY U
     Route: 048
     Dates: start: 20061026, end: 20110807
  6. HALCION [Concomitant]
     Indication: INSOMNIA
     Dosage: 0.25 MG, QD
     Route: 048
     Dates: end: 20100823
  7. VIDEX EC [Concomitant]
     Indication: HIV INFECTION
     Dosage: DIVIDED DOSE UNKNONW
     Route: 048
     Dates: start: 20020903, end: 20040804
  8. ZERIT [Concomitant]
     Indication: INSOMNIA
     Dosage: DIVIDED DOSE UNKNONW
     Route: 048
     Dates: start: 20010904, end: 20040804

REACTIONS (2)
  - Cardiac failure [Fatal]
  - Hepatic function abnormal [Not Recovered/Not Resolved]
